FAERS Safety Report 9629627 (Version 4)
Quarter: 2013Q4

REPORT INFORMATION
  Report Type: Report from Study
  Country: FR (occurrence: FR)
  Receive Date: 20131017
  Receipt Date: 20131223
  Transmission Date: 20140711
  Serious: Yes (Other)
  Sender: FDA-Public Use
  Company Number: FR-ACTELION-A-CH2013-85242

PATIENT
  Age: 11 Year
  Sex: Male
  Weight: 22.7 kg

DRUGS (4)
  1. ZAVESCA [Suspect]
     Indication: NIEMANN-PICK DISEASE
     Dosage: 100 MG, TID
     Route: 048
     Dates: start: 200810
  2. KEPPRA [Suspect]
     Dosage: UNK
     Dates: start: 201205
  3. MODIODAL [Suspect]
     Dosage: UNK
     Dates: start: 20121215
  4. SODIUM VALPROATE [Concomitant]

REACTIONS (8)
  - Stevens-Johnson syndrome [Recovered/Resolved with Sequelae]
  - Skin exfoliation [Recovered/Resolved with Sequelae]
  - Weight decreased [Recovered/Resolved with Sequelae]
  - Decreased appetite [Recovered/Resolved with Sequelae]
  - General physical health deterioration [Recovered/Resolved with Sequelae]
  - Beta haemolytic streptococcal infection [Unknown]
  - Streptococcus test positive [Unknown]
  - Stomatitis [Unknown]
